FAERS Safety Report 9091437 (Version 1)
Quarter: 2013Q1

REPORT INFORMATION
  Report Type: Report from Study
  Country: US (occurrence: US)
  Receive Date: 20130131
  Receipt Date: 20130131
  Transmission Date: 20140127
  Serious: No
  Sender: FDA-Public Use
  Company Number: US-ABBOTT-12P-163-0999743-00

PATIENT
  Age: 65 Year
  Sex: Female

DRUGS (7)
  1. HUMIRA [Suspect]
     Indication: PSORIASIS
     Route: 058
     Dates: start: 201201
  2. ALPRAZOLAM [Concomitant]
     Indication: ANXIETY
     Route: 048
  3. CARVEDILOL [Concomitant]
     Indication: HEART RATE IRREGULAR
     Route: 048
  4. CARVEDILOL [Concomitant]
     Indication: HYPERTENSION
  5. JANUVIA [Concomitant]
     Indication: DIABETES MELLITUS
     Route: 048
  6. LEVOTHYROXINE [Concomitant]
     Indication: PRODUCT USED FOR UNKNOWN INDICATION
     Dosage: EVERY MORNING
     Route: 048
  7. HYDROXYZINE HCL [Concomitant]
     Indication: PRURITUS
     Dosage: AT BEDTIME
     Route: 048

REACTIONS (1)
  - Skin lesion [Not Recovered/Not Resolved]
